FAERS Safety Report 6196371-9 (Version None)
Quarter: 2009Q2

REPORT INFORMATION
  Report Type: 
  Country: None (occurrence: None)
  Receive Date: 20090518
  Receipt Date: 20090518
  Transmission Date: 20091009
  Serious: Yes (Hospitalization)
  Sender: FDA-Public Use
  Company Number: None

PATIENT
  Sex: Male
  Weight: 68.18 kg

DRUGS (1)
  1. CISPLATIN [Suspect]
     Dosage: 376 MG
     Dates: end: 20090402

REACTIONS (1)
  - CHEST PAIN [None]
